FAERS Safety Report 10511088 (Version 2)
Quarter: 2014Q4

REPORT INFORMATION
  Report Type: Spontaneous
  Country: US (occurrence: US)
  Receive Date: 20141010
  Receipt Date: 20141121
  Transmission Date: 20150528
  Serious: No
  Sender: FDA-Public Use
  Company Number: US-009507513-1410USA002257

PATIENT
  Age: 23 Year
  Sex: Female
  Weight: 57.14 kg

DRUGS (1)
  1. NEXPLANON [Suspect]
     Active Substance: ETONOGESTREL
     Indication: CONTRACEPTION
     Dosage: 1 ROD IN THE LEFT ARM
     Route: 059
     Dates: start: 20140918

REACTIONS (3)
  - Ecchymosis [Recovered/Resolved]
  - Haematoma [Unknown]
  - Contusion [Unknown]

NARRATIVE: CASE EVENT DATE: 20140926
